FAERS Safety Report 16999980 (Version 1)
Quarter: 2019Q4

REPORT INFORMATION
  Report Type: Spontaneous
  Country: US (occurrence: US)
  Receive Date: 20191106
  Receipt Date: 20191106
  Transmission Date: 20200122
  Serious: No
  Sender: FDA-Public Use
  Company Number: NVSC2019US025826

PATIENT
  Sex: Female
  Weight: 8.5 kg

DRUGS (1)
  1. ZOLGENSMA [Suspect]
     Active Substance: ONASEMNOGENE ABEPARVOVEC-XIOI
     Indication: PRODUCT USED FOR UNKNOWN INDICATION
     Dosage: 46.8 ML, ONCE/SINGLE
     Route: 042
     Dates: start: 20190719, end: 20190719

REACTIONS (1)
  - Weight decreased [Recovering/Resolving]
